FAERS Safety Report 25234837 (Version 1)
Quarter: 2025Q2

REPORT INFORMATION
  Report Type: Spontaneous
  Country: PL (occurrence: PL)
  Receive Date: 20250424
  Receipt Date: 20250424
  Transmission Date: 20250717
  Serious: Yes (Hospitalization)
  Sender: EXELIXIS
  Company Number: PL-IPSEN Group, Research and Development-2025-08607

PATIENT
  Age: 52 Year
  Sex: Male
  Weight: 136 kg

DRUGS (8)
  1. CABOMETYX [Suspect]
     Active Substance: CABOZANTINIB S-MALATE
     Indication: Metastatic neoplasm
     Dosage: 20 MG, QD
     Route: 048
  2. Oxydolor Fast [Concomitant]
     Dosage: 5 MG, QOD
  3. BUPRENORPHINE [Concomitant]
     Active Substance: BUPRENORPHINE
  4. XARELTO [Concomitant]
     Active Substance: RIVAROXABAN
     Dosage: 20 MG, QD
  5. DIOVAN [Concomitant]
     Active Substance: VALSARTAN
     Dosage: 160 MG, QD
  6. Nebilenin [Concomitant]
     Dosage: 5 MG, QD
  7. HYGROTON [Concomitant]
     Active Substance: CHLORTHALIDONE
     Dosage: 50 MG, QD
  8. Pabi-dexamethason [Concomitant]
     Dosage: 75 MG, QD

REACTIONS (7)
  - Urinary tract infection [Unknown]
  - Scrotal ulcer [Unknown]
  - Peripheral swelling [Unknown]
  - Skin ulcer [Unknown]
  - Skin ulcer [Unknown]
  - Dyspnoea [Unknown]
  - Off label use [Unknown]

NARRATIVE: CASE EVENT DATE: 20230609
